FAERS Safety Report 4395880-2 (Version None)
Quarter: 2004Q3

REPORT INFORMATION
  Report Type: 
  Country: None (occurrence: None)
  Receive Date: 20040713
  Receipt Date: 20040705
  Transmission Date: 20050211
  Serious: Yes (Hospitalization)
  Sender: FDA-Public Use
  Company Number: PHFR2004GB02731

PATIENT
  Sex: Female

DRUGS (5)
  1. DICLOFENAC [Suspect]
     Indication: ARTHRITIS
     Dosage: 50MG/DAY
     Route: 048
     Dates: start: 20040414, end: 20040429
  2. TRAMADOL [Concomitant]
     Indication: ARTHRITIS
     Dosage: 100MG/DAY
     Route: 048
     Dates: start: 20031001
  3. IBUPROFEN [Concomitant]
     Indication: ARTHRITIS
     Dosage: 600MG/DAY
     Route: 048
     Dates: start: 19990401, end: 20040401
  4. IPRATROPIUM BROMIDE [Concomitant]
     Indication: ASTHMA
     Route: 055
     Dates: start: 19900101
  5. QVAR 40 [Concomitant]
     Indication: ASTHMA
     Route: 055
     Dates: start: 19900101

REACTIONS (6)
  - ABDOMINAL PAIN [None]
  - PARAESTHESIA [None]
  - PRURITUS [None]
  - RASH GENERALISED [None]
  - VOMITING [None]
  - WHEEZING [None]
